FAERS Safety Report 7704386-1 (Version None)
Quarter: 2011Q3

REPORT INFORMATION
  Report Type: 
  Country: None (occurrence: None)
  Receive Date: 20110818
  Receipt Date: 20110802
  Transmission Date: 20111222
  Serious: Yes (Hospitalization)
  Sender: FDA-Public Use
  Company Number: 2011MA010858

PATIENT
  Age: 47 Year
  Sex: Male

DRUGS (2)
  1. TRIAMCINOLONE ACETONIDE [Suspect]
     Indication: ARTHRALGIA
     Dosage: 80 MG; 1X; ED
  2. SITAGLIPTIN [Suspect]
     Indication: DIABETES MELLITUS
     Dosage: 50 MG; QD; PO
     Route: 048

REACTIONS (3)
  - ADRENAL INSUFFICIENCY [None]
  - DIABETES MELLITUS INADEQUATE CONTROL [None]
  - PANCREATITIS [None]
